FAERS Safety Report 10732216 (Version 1)
Quarter: 2015Q1

REPORT INFORMATION
  Report Type: Spontaneous
  Country: US (occurrence: None)
  Receive Date: 20150120
  Receipt Date: 20150120
  Transmission Date: 20150721
  Serious: Yes (Death, Other)
  Sender: FDA-Public Use
  Company Number: US-2015VAL000030

PATIENT

DRUGS (1)
  1. CARBAMAZEPINE (CARBAMAZEPINE) UNKNOWN [Suspect]
     Active Substance: CARBAMAZEPINE
     Indication: MATERNAL EXPOSURE DURING PREGNANCY

REACTIONS (2)
  - Stillbirth [None]
  - Foetal exposure during pregnancy [None]
